FAERS Safety Report 7535117-6 (Version None)
Quarter: 2011Q2

REPORT INFORMATION
  Report Type: 
  Country: None (occurrence: None)
  Receive Date: 20110609
  Receipt Date: 20110602
  Transmission Date: 20111010
  Serious: No
  Sender: FDA-Public Use
  Company Number: US-BIOGENIDEC-2011BI020586

PATIENT
  Age: 45 Year
  Sex: Male

DRUGS (1)
  1. TYSABRI [Suspect]
     Indication: CROHN'S DISEASE
     Route: 042
     Dates: start: 20110324

REACTIONS (5)
  - NAUSEA [None]
  - CHILLS [None]
  - JOINT SWELLING [None]
  - ARTHRALGIA [None]
  - OEDEMA PERIPHERAL [None]
